FAERS Safety Report 5928225-4 (Version None)
Quarter: 2008Q4

REPORT INFORMATION
  Report Type: 
  Country: None (occurrence: None)
  Receive Date: 20081023
  Receipt Date: 20081016
  Transmission Date: 20090506
  Serious: Yes (Life-Threatening, Hospitalization, Other)
  Sender: FDA-Public Use
  Company Number: US-MERCK-0810USA01555

PATIENT
  Sex: Male
  Weight: 50 kg

DRUGS (2)
  1. SINGULAIR [Suspect]
     Indication: HYPERSENSITIVITY
     Route: 048
  2. SINGULAIR [Suspect]
     Indication: ASTHMA
     Route: 048

REACTIONS (3)
  - DEPRESSION [None]
  - LACERATION [None]
  - SUICIDE ATTEMPT [None]
